FAERS Safety Report 5500926-1 (Version None)
Quarter: 2007Q4

REPORT INFORMATION
  Report Type: 
  Country: None (occurrence: None)
  Receive Date: 20071029
  Receipt Date: 20071025
  Transmission Date: 20080405
  Serious: Yes (Death, Hospitalization)
  Sender: FDA-Public Use
  Company Number: PHEH2007US13112

PATIENT
  Age: 63 Year
  Sex: Female
  Weight: 65.306 kg

DRUGS (11)
  1. LANOXIN [Concomitant]
  2. CLONIDINE [Concomitant]
     Indication: HYPERTENSION
     Dosage: 0.2 MG, UNK
     Dates: start: 20070109
  3. VERELAN [Concomitant]
     Indication: HYPERTENSION
     Dosage: 200 MG, UNK
     Dates: start: 20070126
  4. COUMADIN [Concomitant]
     Indication: ATRIAL FIBRILLATION
     Dosage: 5 MG, UNK
     Dates: start: 20060915
  5. LASIX [Concomitant]
     Indication: CARDIAC FAILURE CONGESTIVE
     Dosage: 40 MG, UNK
  6. FOLIC ACID [Concomitant]
     Indication: CORONARY ARTERY DISEASE
     Dosage: 1 MG, UNK
  7. ALLOPURINOL [Concomitant]
     Indication: GOUT
     Dosage: 100 MG, UNK
  8. ASPIRIN [Concomitant]
     Indication: CORONARY ARTERY DISEASE
     Dosage: 81 MG, UNK
  9. SYNTHROID [Concomitant]
  10. LYRICA [Concomitant]
     Indication: NEUROPATHY PERIPHERAL
     Dosage: 75 MG, UNK
     Dates: start: 20061122
  11. TEKTURNA [Suspect]
     Indication: HYPERTENSION

REACTIONS (11)
  - BLISTER [None]
  - ERYTHEMA [None]
  - HAEMOGLOBIN DECREASED [None]
  - PLEURAL EFFUSION [None]
  - PULMONARY HYPERTENSION [None]
  - RASH PAPULAR [None]
  - RASH VESICULAR [None]
  - SKIN EXFOLIATION [None]
  - ULTRASOUND SCAN ABNORMAL [None]
  - VASCULITIS NECROTISING [None]
  - WHITE BLOOD CELL COUNT INCREASED [None]
